FAERS Safety Report 24061755 (Version 1)
Quarter: 2024Q3

REPORT INFORMATION
  Report Type: Spontaneous
  Country: US (occurrence: None)
  Receive Date: 20240706
  Receipt Date: 20240706
  Transmission Date: 20241017
  Serious: Yes (Other)
  Sender: Public
  Company Number: None

PATIENT
  Age: 60 Year
  Sex: Female
  Weight: 69.75 kg

DRUGS (1)
  1. EZETIMIBE [Suspect]
     Active Substance: EZETIMIBE
     Indication: Blood cholesterol increased
     Dosage: 90 TABLETS AT BEDTIME ORAL?
     Route: 048

REACTIONS (5)
  - Dry mouth [None]
  - Hypoaesthesia oral [None]
  - Pharyngeal hypoaesthesia [None]
  - Speech disorder [None]
  - Therapy cessation [None]

NARRATIVE: CASE EVENT DATE: 20240705
